FAERS Safety Report 9759570 (Version 1)
Quarter: 2013Q4

REPORT INFORMATION
  Report Type: Spontaneous
  Country: US (occurrence: US)
  Receive Date: 20131216
  Receipt Date: 20131216
  Transmission Date: 20140711
  Serious: No
  Sender: FDA-Public Use
  Company Number: US-GILEAD-2010-0028221

PATIENT
  Age: 83 Year
  Sex: Male

DRUGS (8)
  1. LETAIRIS [Suspect]
     Indication: PULMONARY ARTERIAL HYPERTENSION
     Route: 048
     Dates: start: 20100303
  2. LETAIRIS [Suspect]
     Route: 048
     Dates: start: 20100202, end: 20100303
  3. BENAZ/HCTZ [Concomitant]
  4. OMEPRAZOLE [Concomitant]
  5. ASA [Concomitant]
  6. CENTRUM SILVER [Concomitant]
  7. FEOSOL [Concomitant]
  8. SIMVASTATIN [Concomitant]

REACTIONS (2)
  - Chills [Recovered/Resolved]
  - Dyspnoea [Not Recovered/Not Resolved]
